FAERS Safety Report 21306797 (Version 1)
Quarter: 2022Q3

REPORT INFORMATION
  Report Type: Spontaneous
  Country: CN (occurrence: CN)
  Receive Date: 20220908
  Receipt Date: 20220908
  Transmission Date: 20221026
  Serious: Yes (Other)
  Sender: FDA-Public Use
  Company Number: None

PATIENT
  Age: 14 Year
  Sex: Male
  Weight: 62.8 kg

DRUGS (5)
  1. CYCLOPHOSPHAMIDE [Suspect]
     Active Substance: CYCLOPHOSPHAMIDE
     Indication: Acute lymphocytic leukaemia
     Dosage: 1.69 G, QD (DILUTED WITH (4:1) GLUCOSE AND SODIUM CHLORIDE 250 ML, ST; CAM CHEMOTHERAPY)
     Route: 041
     Dates: start: 20220624, end: 20220624
  2. DEXTROSE MONOHYDRATE\SODIUM CHLORIDE [Suspect]
     Active Substance: DEXTROSE MONOHYDRATE\SODIUM CHLORIDE
     Indication: Medication dilution
     Dosage: 250 ML, QD (4:1) (DILUTED WITH CYCLOPHOSPHAMIDE FOR INJECTION 1.69 G, ST)
     Route: 041
     Dates: start: 20220624, end: 20220624
  3. DEXTROSE MONOHYDRATE\SODIUM CHLORIDE [Suspect]
     Active Substance: DEXTROSE MONOHYDRATE\SODIUM CHLORIDE
     Dosage: 250 ML, BID (4:1) (DILUTED WITH CYTARABINE FOR INJECTION 1.69 G)
     Route: 041
     Dates: start: 20220624, end: 20220627
  4. MERCAPTOPURINE [Suspect]
     Active Substance: MERCAPTOPURINE
     Indication: Acute lymphocytic leukaemia
     Dosage: 84 MG, ONCE DAILY (QN; CAM CHEMOTHERAPY)
     Route: 048
     Dates: start: 20220624, end: 20220627
  5. CYTARABINE [Suspect]
     Active Substance: CYTARABINE
     Indication: Acute lymphocytic leukaemia
     Dosage: 1.69 G, BID (DILUTED WITH (4:1) GLUCOSE AND SODIUM CHLORIDE 250 ML; CAM CHEMOTHERAPY)
     Route: 041
     Dates: start: 20220624, end: 20220627

REACTIONS (1)
  - Myelosuppression [Recovering/Resolving]

NARRATIVE: CASE EVENT DATE: 20220703
